FAERS Safety Report 7330113-6 (Version None)
Quarter: 2011Q1

REPORT INFORMATION
  Report Type: 
  Country: None (occurrence: None)
  Receive Date: 20110303
  Receipt Date: 20110221
  Transmission Date: 20110831
  Serious: Yes (Other)
  Sender: FDA-Public Use
  Company Number: HR-BAYER-2011-016298

PATIENT
  Sex: Female

DRUGS (2)
  1. YASMIN 0,03 MG/3 MG FILM COATED TABLETS [Suspect]
     Indication: POLYCYSTIC OVARIES
     Dosage: UNK
     Dates: start: 20080101
  2. YAZ 0,02 MG/3,0 MG FILM COATED TABLETS [Suspect]
     Indication: POLYCYSTIC OVARIES
     Dosage: UNK
     Route: 048
     Dates: start: 20101101, end: 20110201

REACTIONS (4)
  - HYPOAESTHESIA ORAL [None]
  - HYPOAESTHESIA [None]
  - BLINDNESS [None]
  - AMNESIA [None]
